FAERS Safety Report 21160373 (Version 1)
Quarter: 2022Q3

REPORT INFORMATION
  Report Type: Spontaneous
  Country: US (occurrence: US)
  Receive Date: 20220802
  Receipt Date: 20220802
  Transmission Date: 20221026
  Serious: No
  Sender: FDA-Public Use
  Company Number: US-MICRO LABS LIMITED-ML2022-02230

PATIENT
  Age: 61 Year
  Sex: Female

DRUGS (24)
  1. KETOROLAC TROMETHAMINE [Suspect]
     Active Substance: KETOROLAC TROMETHAMINE
     Indication: Retinitis
     Dosage: ONE DROP
     Route: 047
  2. CALCIUM CITRATE [Concomitant]
     Active Substance: CALCIUM CITRATE
     Indication: Osteoporosis
     Dosage: 600 MG
  3. SYNTHROID [Concomitant]
     Active Substance: LEVOTHYROXINE SODIUM
     Indication: Hypothyroidism
     Route: 048
  4. EZETIMIBE. [Concomitant]
     Indication: Blood cholesterol
     Dosage: DAILY
     Route: 048
  5. OMEGA 3 [Concomitant]
     Active Substance: CAPSAICIN
     Indication: Hypercholesterolaemia
     Dosage: 1GM TAKE 2 CAPS DAILY
  6. ASPIRIN [Concomitant]
     Active Substance: ASPIRIN
     Indication: General physical condition
     Route: 048
  7. LUTEIN EYE VITAMINS [Concomitant]
     Indication: Eye disorder
     Dosage: 1 TAB DAILY
  8. FLAXSEED [Concomitant]
     Active Substance: FLAX SEED
     Indication: Eye disorder
     Dosage: 1000MG 1 CAP PO DAILY FOR EYE HEALTH
     Route: 048
  9. AZOPT [Concomitant]
     Active Substance: BRINZOLAMIDE
     Indication: Retinitis
     Dosage: 1 DROP BID
  10. CLARITIN [Concomitant]
     Active Substance: LORATADINE
     Indication: Hypersensitivity
     Dosage: 1 TAB DAILY
  11. PEPCID [Concomitant]
     Active Substance: FAMOTIDINE
     Indication: Gastrooesophageal reflux disease
     Dosage: 10 MG DAILY FOR ACID REFLUX
  12. BIOTIN [Concomitant]
     Active Substance: BIOTIN
     Dosage: 1 TAB DAILY
  13. LYSINE [Concomitant]
     Active Substance: LYSINE
     Dosage: DAILY
  14. VITAMIN C [Concomitant]
     Active Substance: ASCORBIC ACID
     Dosage: 1 TAB DAILY
  15. VITAMINS [Concomitant]
     Active Substance: VITAMINS
  16. HERBALS\TURMERIC [Concomitant]
     Active Substance: HERBALS\TURMERIC
     Dosage: 1 CAP DAILY
  17. CRANBERRY [Concomitant]
     Active Substance: CRANBERRY
     Dosage: 1 CAP DAILY
  18. COENZYME Q10 [Concomitant]
     Active Substance: DIETARY SUPPLEMENT\UBIDECARENONE
     Dosage: DAILY
  19. GOLI [Concomitant]
     Dosage: 1 TAB DAILY
  20. CINNAMON [Concomitant]
     Active Substance: CINNAMON
     Dosage: 1 CAP DAILY
  21. PSYLLIUM POWDER [Concomitant]
     Dosage: 1 PACKET DAILY
  22. DENIVIR CREAM [Concomitant]
     Indication: Oral herpes
     Dosage: AS NEEDED FOR FEVER BLISTERS
  23. VALTREX [Concomitant]
     Active Substance: VALACYCLOVIR HYDROCHLORIDE
     Indication: Oral herpes
     Dosage: AS NEEDED FOR FEVER BLISTERS
  24. VITAMIN D3 [Concomitant]
     Active Substance: CHOLECALCIFEROL
     Indication: Osteoporosis

REACTIONS (3)
  - Incorrect dose administered [Unknown]
  - Product container issue [Unknown]
  - No adverse event [Unknown]
